FAERS Safety Report 22912729 (Version 2)
Quarter: 2023Q4

REPORT INFORMATION
  Report Type: Spontaneous
  Country: CA (occurrence: CA)
  Receive Date: 20230906
  Receipt Date: 20231106
  Transmission Date: 20240110
  Serious: Yes (Other)
  Sender: FDA-Public Use
  Company Number: CA-PFIZER INC-202300034488

PATIENT
  Age: 45 Year
  Sex: Female

DRUGS (2)
  1. SOMATROPIN [Suspect]
     Active Substance: SOMATROPIN
     Indication: Growth hormone deficiency
     Dosage: 300 UG, WEEKLY (0.3 MG, 7 DAYS/WEEK (5.3MG PEN)
     Route: 058
     Dates: start: 2023, end: 2023
  2. SOMATROPIN [Suspect]
     Active Substance: SOMATROPIN
     Dosage: 500 UG(0.5 MG, 7 DAYS/WEEK (5.3MG PEN)
     Route: 058
     Dates: start: 2023

REACTIONS (3)
  - Blood glucose decreased [Unknown]
  - Sleep apnoea syndrome [Not Recovered/Not Resolved]
  - Somnolence [Unknown]

NARRATIVE: CASE EVENT DATE: 20230101
